FAERS Safety Report 6245116-2 (Version None)
Quarter: 2009Q2

REPORT INFORMATION
  Report Type: 
  Country: None (occurrence: None)
  Receive Date: 20090623
  Receipt Date: 20090623
  Transmission Date: 20091009
  Serious: No
  Sender: FDA-Public Use
  Company Number: None

PATIENT
  Age: 60 Year
  Sex: Male
  Weight: 99.7913 kg

DRUGS (1)
  1. LISINOPRIL AND HYDROCHLOROTHIAZIDE [Suspect]
     Indication: HYPERTENSION
     Dosage: 20MG/12.5MG ONCE A DAY

REACTIONS (8)
  - AMNESIA [None]
  - ASTHENIA [None]
  - DECREASED ACTIVITY [None]
  - EATING DISORDER [None]
  - FEELINGS OF WORTHLESSNESS [None]
  - HYPERSOMNIA [None]
  - IMPAIRED WORK ABILITY [None]
  - WEIGHT DECREASED [None]
